FAERS Safety Report 10214984 (Version 1)
Quarter: 2014Q2

REPORT INFORMATION
  Report Type: Report from Study
  Country: DK (occurrence: DE)
  Receive Date: 20140603
  Receipt Date: 20140603
  Transmission Date: 20141212
  Serious: Yes (Other)
  Sender: FDA-Public Use
  Company Number: DE-FRI-1000067784

PATIENT
  Sex: Female

DRUGS (14)
  1. CITALOPRAM [Suspect]
     Dosage: 10 MG
     Route: 048
     Dates: start: 20131213, end: 20131224
  2. CITALOPRAM [Suspect]
     Dosage: 30 MG
     Route: 048
     Dates: start: 20131225, end: 20140107
  3. CITALOPRAM [Suspect]
     Dosage: 40 MG
     Route: 048
     Dates: start: 20140108, end: 20140121
  4. CITALOPRAM [Suspect]
     Dosage: 30 MG
     Route: 048
     Dates: start: 20140122, end: 20140202
  5. CITALOPRAM [Suspect]
     Dosage: 10 MG
     Route: 048
     Dates: start: 20140203, end: 20140204
  6. FLUPENTIXOL [Suspect]
     Dosage: 12.5 MG
     Route: 048
     Dates: start: 20140108, end: 20140114
  7. MIRTAZAPIN [Concomitant]
     Dosage: 30 MG
     Route: 048
     Dates: end: 20131229
  8. MIRTAZAPIN [Concomitant]
     Dosage: 45 MG
     Route: 048
     Dates: start: 20131230
  9. ZOLPIDEM [Concomitant]
     Dosage: 5 MG
     Route: 048
     Dates: start: 20140102, end: 20140127
  10. AMLODIPIN [Concomitant]
     Dosage: 5 MG
     Route: 048
  11. METOPROLOL [Concomitant]
     Dosage: 47.5 MG
     Route: 048
  12. PANTOPRAZOL [Concomitant]
     Dosage: 40 MG
     Route: 048
  13. SODIUM CHLORIDE [Concomitant]
     Dosage: 500 MG
     Route: 048
     Dates: start: 20130131, end: 20140114
  14. MOVICOL [Concomitant]
     Dosage: 2 DOSAGE FORMS
     Route: 048
     Dates: start: 20140107

REACTIONS (3)
  - Akathisia [Recovered/Resolved]
  - Parkinsonism [Recovered/Resolved]
  - Drug ineffective [Recovered/Resolved]
